FAERS Safety Report 7749710-9 (Version None)
Quarter: 2011Q3

REPORT INFORMATION
  Report Type: 
  Country: None (occurrence: None)
  Receive Date: 20110914
  Receipt Date: 20110831
  Transmission Date: 20111222
  Serious: Yes (Hospitalization, Other)
  Sender: FDA-Public Use
  Company Number: JP-PFIZER INC-2011186160

PATIENT
  Age: 71 Year
  Sex: Male

DRUGS (8)
  1. FOROCYLE S [Suspect]
     Dosage: 2G, 2X/DAY
     Route: 042
     Dates: start: 20080226, end: 20080227
  2. FOROCYLE S [Suspect]
     Indication: INFECTION PROPHYLAXIS
     Dosage: 2 G, 2X/DAY
     Route: 041
     Dates: start: 20080131, end: 20080201
  3. AMINOLEBAN EN [Concomitant]
     Indication: HEPATIC FAILURE
     Dosage: 50 G, 2X/DAY
     Route: 048
     Dates: end: 20080503
  4. LENDORMIN [Concomitant]
     Indication: INSOMNIA
     Dosage: .25 MG, 1X/DAY
     Route: 048
     Dates: start: 20080122, end: 20080503
  5. LASIX [Concomitant]
     Indication: RENAL FAILURE
     Dosage: 80 MG, 2X/DAY
     Route: 048
     Dates: end: 20080503
  6. INDERAL [Suspect]
     Indication: HYPERTENSION
     Dosage: 10 MG, 2X/DAY
     Route: 048
     Dates: start: 20080111, end: 20080212
  7. FOROCYLE S [Suspect]
     Dosage: 2 G, 2X/DAY
     Route: 042
     Dates: start: 20080207, end: 20080208
  8. LANSOPRAZOLE [Concomitant]
     Indication: GASTRIC ULCER
     Dosage: 30 MG, 1X/DAY
     Route: 048
     Dates: end: 20080328

REACTIONS (1)
  - RASH PUSTULAR [None]
